FAERS Safety Report 17935133 (Version 1)
Quarter: 2020Q2

REPORT INFORMATION
  Report Type: Spontaneous
  Country: US (occurrence: US)
  Receive Date: 20200624
  Receipt Date: 20200624
  Transmission Date: 20200714
  Serious: Yes (Other)
  Sender: FDA-Public Use
  Company Number: US-PFIZER INC-2020242670

PATIENT
  Sex: Female

DRUGS (6)
  1. CYTOMEL [Suspect]
     Active Substance: LIOTHYRONINE SODIUM
     Dosage: 10 MG, DAILY
  2. CYTOMEL [Suspect]
     Active Substance: LIOTHYRONINE SODIUM
     Dosage: 5 MG, DAILY
  3. LEVOTHYROXINE SODIUM. [Suspect]
     Active Substance: LEVOTHYROXINE SODIUM
     Dosage: UNK (SPLITS IT IN HALF, WOULD BE GETTING 12.5 MCG)
  4. SYNTHROID [Suspect]
     Active Substance: LEVOTHYROXINE SODIUM
     Indication: PROPHYLAXIS
     Dosage: UNK
     Route: 048
  5. ARMOUR THYROID [Suspect]
     Active Substance: THYROID, PORCINE
     Dosage: UNK
  6. LIOTHYRONINE SODIUM. [Suspect]
     Active Substance: LIOTHYRONINE SODIUM
     Dosage: UNK

REACTIONS (7)
  - Therapeutic product effect incomplete [Unknown]
  - Tri-iodothyronine increased [Unknown]
  - Polycystic ovaries [Unknown]
  - Palpitations [Unknown]
  - Drug ineffective [Unknown]
  - Hypothyroidism [Unknown]
  - Tri-iodothyronine decreased [Unknown]
